FAERS Safety Report 6393901-9 (Version None)
Quarter: 2009Q4

REPORT INFORMATION
  Report Type: 
  Country: None (occurrence: None)
  Receive Date: 20091008
  Receipt Date: 20090928
  Transmission Date: 20100525
  Serious: Yes (Hospitalization)
  Sender: FDA-Public Use
  Company Number: FR-AVENTIS-200913581FR

PATIENT
  Age: 76 Year
  Sex: Male

DRUGS (5)
  1. CLAFORAN [Suspect]
     Route: 042
     Dates: start: 20090624, end: 20090705
  2. TIAPRIDAL                          /00435701/ [Suspect]
     Route: 042
     Dates: start: 20090630, end: 20090704
  3. HEPARINE CALCIQUE [Suspect]
     Route: 042
     Dates: start: 20090615, end: 20090707
  4. ZYVOXID [Suspect]
     Route: 042
     Dates: start: 20090627, end: 20090705
  5. DOBUTAMINE HCL [Suspect]
     Route: 042
     Dates: start: 20090620, end: 20090707

REACTIONS (2)
  - HEPARIN-INDUCED THROMBOCYTOPENIA [None]
  - VENOUS THROMBOSIS [None]
